FAERS Safety Report 25825639 (Version 3)
Quarter: 2025Q4

REPORT INFORMATION
  Report Type: Spontaneous
  Country: CA (occurrence: CA)
  Receive Date: 20250919
  Receipt Date: 20251106
  Transmission Date: 20260117
  Serious: No
  Sender: MYLAN
  Company Number: CA-MYLANLABS-2025M1079152

PATIENT
  Age: 4 Year
  Sex: Female

DRUGS (4)
  1. EPIPEN JR [Suspect]
     Active Substance: EPINEPHRINE
     Indication: Product used for unknown indication
     Dosage: UNK
  2. EPIPEN JR [Suspect]
     Active Substance: EPINEPHRINE
     Dosage: UNK
     Route: 065
  3. EPIPEN JR [Suspect]
     Active Substance: EPINEPHRINE
     Dosage: UNK
     Route: 065
  4. EPIPEN JR [Suspect]
     Active Substance: EPINEPHRINE
     Dosage: UNK

REACTIONS (1)
  - Product quality issue [Unknown]

NARRATIVE: CASE EVENT DATE: 20250915
